FAERS Safety Report 20020213 (Version 1)
Quarter: 2021Q4

REPORT INFORMATION
  Report Type: Spontaneous
  Country: GB (occurrence: GB)
  Receive Date: 20211101
  Receipt Date: 20211101
  Transmission Date: 20220303
  Serious: Yes (Life-Threatening, Other)
  Sender: FDA-Public Use
  Company Number: None

PATIENT
  Age: 66 Year
  Sex: Female
  Weight: 90 kg

DRUGS (1)
  1. PACLITAXEL [Suspect]
     Active Substance: PACLITAXEL
     Indication: Ovarian cancer
     Dosage: 144 MG
     Route: 042
     Dates: start: 20211018, end: 20211018

REACTIONS (8)
  - Anaphylactic reaction [Recovering/Resolving]
  - Unresponsive to stimuli [Unknown]
  - Abdominal pain upper [Unknown]
  - Pallor [Unknown]
  - Back pain [Unknown]
  - Malaise [Unknown]
  - Presyncope [Unknown]
  - Rales [Unknown]

NARRATIVE: CASE EVENT DATE: 20211018
